FAERS Safety Report 9787614 (Version 3)
Quarter: 2014Q2

REPORT INFORMATION
  Report Type: Report from Study
  Country: CN (occurrence: CN)
  Receive Date: 20131230
  Receipt Date: 20140508
  Transmission Date: 20141212
  Serious: Yes (Hospitalization, Other)
  Sender: FDA-Public Use
  Company Number: CN-ROCHE-1324387

PATIENT
  Sex: Female

DRUGS (3)
  1. CELLCEPT [Suspect]
     Indication: RENAL TRANSPLANT
     Route: 048
     Dates: start: 20010111
  2. PREDNISONE [Concomitant]
     Indication: RENAL TRANSPLANT
     Route: 048
     Dates: start: 20010111
  3. CYCLOSPORINE [Concomitant]
     Indication: RENAL TRANSPLANT
     Dosage: ALTERNATE AT 3 DOSE FORMS AND 4 DOSE FORMS PER DAY
     Route: 048
     Dates: start: 20010111

REACTIONS (6)
  - Renal disorder [Unknown]
  - Bladder cancer [Recovering/Resolving]
  - Wound dehiscence [Recovering/Resolving]
  - Thyroid neoplasm [Recovering/Resolving]
  - Hydronephrosis [Recovering/Resolving]
  - Renal cancer [Unknown]
